FAERS Safety Report 8635931 (Version 10)
Quarter: 2013Q4

REPORT INFORMATION
  Report Type: Report from Study
  Country: CA (occurrence: CA)
  Receive Date: 20120626
  Receipt Date: 20131002
  Transmission Date: 20140711
  Serious: Yes (Hospitalization, Other)
  Sender: FDA-Public Use
  Company Number: CA-ROCHE-1078897

PATIENT
  Age: 55 Year
  Sex: Female
  Weight: 79.4 kg

DRUGS (38)
  1. ACTEMRA [Suspect]
     Indication: RHEUMATOID ARTHRITIS
     Route: 042
     Dates: start: 20101123, end: 20120716
  2. ACTEMRA [Suspect]
     Route: 042
     Dates: start: 20111116
  3. ACTEMRA [Suspect]
     Route: 042
     Dates: start: 20120516
  4. RITUXAN [Suspect]
     Indication: RHEUMATOID ARTHRITIS
     Route: 042
     Dates: start: 20130115, end: 20130909
  5. ISOSORBIDE MONONITRATE [Concomitant]
     Route: 051
  6. NAPROXEN [Concomitant]
     Route: 065
  7. CLONAZEPAM [Concomitant]
  8. EUCORIN ANTI-ITCH SPRAY (UNK INGREDIENTS) [Concomitant]
     Route: 065
  9. CYCLOBENZAPRINE [Concomitant]
     Route: 065
  10. PREDNISONE [Concomitant]
     Route: 065
  11. LYRICA [Concomitant]
     Route: 065
  12. METHOTRIMEPRAZINE [Concomitant]
     Route: 065
  13. PANTOPRAZOLE [Concomitant]
     Route: 065
  14. RANITIDINE [Concomitant]
     Route: 048
  15. ASA [Concomitant]
     Route: 065
  16. TIAZAC [Concomitant]
     Route: 048
  17. LORAZEPAM [Concomitant]
     Route: 065
  18. IMDUR [Concomitant]
     Route: 065
  19. CRESTOR [Concomitant]
     Route: 048
  20. TRAZALON [Concomitant]
     Route: 065
  21. METHOTREXATE [Concomitant]
  22. ACETAMINOPHEN/CAFFEINE/CODEINE PHOSPHATE [Concomitant]
     Dosage: BRAND NAME: ACET
     Route: 065
  23. ACETAMINOPHEN/CAFFEINE/CODEINE PHOSPHATE [Concomitant]
     Route: 048
     Dates: start: 20130115
  24. GUAIFENESIN/PHENYLEPHRINE [Concomitant]
     Dosage: BRAND NAME: D TABS
     Route: 048
  25. CATAPRES [Concomitant]
  26. CYMBALTA [Concomitant]
     Route: 065
  27. TYLENOL [Concomitant]
  28. JURNISTA [Concomitant]
     Route: 048
  29. TEMAZEPAM [Concomitant]
     Route: 048
  30. SENOKOT [Concomitant]
     Route: 048
  31. QUETIAPINA [Concomitant]
     Route: 048
  32. QUETIAPINA [Concomitant]
     Route: 065
  33. PANTOLOC [Concomitant]
     Route: 048
  34. COLACE [Concomitant]
     Route: 048
  35. GRAVOL [Concomitant]
  36. LEUCOVORIN [Concomitant]
     Route: 048
  37. METHYLPREDNISOLONE [Concomitant]
     Route: 042
     Dates: start: 20130115
  38. DIPHENHYDRAMINE HCL [Concomitant]
     Route: 048
     Dates: start: 20130115

REACTIONS (14)
  - Platelet count decreased [Recovered/Resolved]
  - Abdominal pain upper [Recovered/Resolved]
  - Intra-abdominal haematoma [Recovering/Resolving]
  - Wound [Not Recovered/Not Resolved]
  - Drug effect decreased [Unknown]
  - Synovitis [Unknown]
  - Arthritis [Not Recovered/Not Resolved]
  - Bronchitis [Recovered/Resolved]
  - Skin ulcer [Unknown]
  - Pain [Not Recovered/Not Resolved]
  - Wound [Unknown]
  - Weight decreased [Not Recovered/Not Resolved]
  - Malaise [Unknown]
  - Infusion related reaction [Unknown]
